FAERS Safety Report 9559565 (Version 1)
Quarter: 2013Q3

REPORT INFORMATION
  Report Type: Spontaneous
  Country: US (occurrence: None)
  Receive Date: 20130925
  Receipt Date: 20130925
  Transmission Date: 20140515
  Serious: Yes (Hospitalization)
  Sender: FDA-Public Use
  Company Number: 2010US-39305

PATIENT
  Age: 32 Year
  Sex: Female

DRUGS (2)
  1. IBUPROFEN [Suspect]
     Indication: BACK PAIN
  2. IBUPROFEN [Suspect]
     Indication: MUSCULOSKELETAL PAIN

REACTIONS (2)
  - Extradural haematoma [None]
  - Blood pressure increased [None]
